FAERS Safety Report 10311486 (Version 2)
Quarter: 2014Q3

REPORT INFORMATION
  Report Type: Spontaneous
  Country: AU (occurrence: AU)
  Receive Date: 20140717
  Receipt Date: 20140723
  Transmission Date: 20150326
  Serious: Yes (Hospitalization, Other)
  Sender: FDA-Public Use
  Company Number: AU-ALLERGAN-1415591US

PATIENT
  Age: 70 Year
  Sex: Male

DRUGS (7)
  1. FLAREX [Concomitant]
     Active Substance: FLUOROMETHOLONE ACETATE
     Route: 047
  2. TIMOLOL MALEATE 0.5% SOL [Suspect]
     Active Substance: TIMOLOL MALEATE
     Indication: GLAUCOMA
     Dosage: ^2 DOSE UNSPECIFIED DAILY^
     Route: 047
  3. TIAPROFENIC ACID [Concomitant]
     Active Substance: TIAPROFENIC ACID
  4. LATANOPROST. [Concomitant]
     Active Substance: LATANOPROST
     Route: 047
  5. CHLORSIG [Concomitant]
     Active Substance: CHLORAMPHENICOL
     Route: 047
  6. ACETAZOLAMIDE. [Concomitant]
     Active Substance: ACETAZOLAMIDE
     Route: 048
  7. ALPHAGAN P [Suspect]
     Active Substance: BRIMONIDINE TARTRATE
     Indication: GLAUCOMA
     Dosage: UNK
     Route: 047

REACTIONS (2)
  - Chest pain [Recovered/Resolved]
  - Ventricular tachycardia [Recovered/Resolved]

NARRATIVE: CASE EVENT DATE: 20000713
